FAERS Safety Report 12360628 (Version 2)
Quarter: 2016Q2

REPORT INFORMATION
  Report Type: Spontaneous
  Country: LB (occurrence: LB)
  Receive Date: 20160512
  Receipt Date: 20160601
  Transmission Date: 20160815
  Serious: Yes (Life-Threatening)
  Sender: FDA-Public Use
  Company Number: LB-SA-2016SA091794

PATIENT
  Age: 60 Year
  Sex: Male

DRUGS (1)
  1. LOVENOX [Suspect]
     Active Substance: ENOXAPARIN SODIUM
     Indication: PERCUTANEOUS CORONARY INTERVENTION
     Dosage: BOLUS
     Route: 040

REACTIONS (3)
  - Anaphylactic shock [Recovered/Resolved]
  - Cardiac arrest [Recovered/Resolved]
  - Hypotension [Recovered/Resolved]
